FAERS Safety Report 9438229 (Version 1)
Quarter: 2013Q3

REPORT INFORMATION
  Report Type: Spontaneous
  Country: US (occurrence: US)
  Receive Date: 20130802
  Receipt Date: 20130802
  Transmission Date: 20140515
  Serious: No
  Sender: FDA-Public Use
  Company Number: US-BRISTOL-MYERS SQUIBB COMPANY-17392200

PATIENT
  Age: 88 Year
  Sex: Female

DRUGS (3)
  1. COUMADIN [Suspect]
  2. PLAVIX [Concomitant]
  3. PRAVASTATINE [Concomitant]

REACTIONS (2)
  - Fatigue [Unknown]
  - Photophobia [Unknown]
